FAERS Safety Report 23917874 (Version 1)
Quarter: 2024Q2

REPORT INFORMATION
  Report Type: Spontaneous
  Country: NL (occurrence: NL)
  Receive Date: 20240530
  Receipt Date: 20240530
  Transmission Date: 20240716
  Serious: Yes (Hospitalization)
  Sender: FDA-Public Use
  Company Number: None

PATIENT
  Age: 70 Year
  Sex: Male
  Weight: 82 kg

DRUGS (3)
  1. KEPPRA [Suspect]
     Active Substance: LEVETIRACETAM
     Indication: Epilepsy
     Dosage: 1500 MILLIGRAM, 2X/DAY (BID) (2 DAILY 1500)
     Dates: start: 20220710
  2. VIMPAT [Suspect]
     Active Substance: LACOSAMIDE
     Indication: Epilepsy
     Dosage: 100 MILLIGRAM, 2X/DAY (BID) (2 DD 100 MG)
     Dates: start: 20230310
  3. VALPROATE SODIUM [Suspect]
     Active Substance: VALPROATE SODIUM
     Indication: Status epilepticus
     Dosage: 1500 MILLIGRAM, 2X/DAY (BID) (2 DD 1500 MG)
     Dates: start: 20240424

REACTIONS (5)
  - Catatonia [Recovering/Resolving]
  - Cold sweat [Recovering/Resolving]
  - Erythema [Recovering/Resolving]
  - Akathisia [Recovering/Resolving]
  - Disturbance in attention [Recovering/Resolving]
